FAERS Safety Report 10405052 (Version 5)
Quarter: 2014Q4

REPORT INFORMATION
  Report Type: Spontaneous
  Country: GB (occurrence: GB)
  Receive Date: 20140825
  Receipt Date: 20141022
  Transmission Date: 20150528
  Serious: Yes (Other)
  Sender: FDA-Public Use
  Company Number: GB-ACCORD-025500

PATIENT
  Sex: Male

DRUGS (5)
  1. TRAMADOL ACTAVIS [Suspect]
     Active Substance: TRAMADOL
     Indication: PRODUCT USED FOR UNKNOWN INDICATION
     Dosage: TAKES 50MG AT NIGHT AND 2 X 50MG IN MORNING AND AFTERNOON
     Route: 048
  2. TRAMCET [Suspect]
     Active Substance: ACETAMINOPHEN\TRAMADOL
     Indication: PRODUCT USED FOR UNKNOWN INDICATION
     Dosage: 37.5MG/325MG
     Route: 048
  3. OMEPRAZOLE TEVA [Suspect]
     Active Substance: OMEPRAZOLE
     Indication: PRODUCT USED FOR UNKNOWN INDICATION
     Dosage: TAKES 1 X 20MG DAILY
     Route: 048
  4. AMITRYPTYLINE ACCORD [Suspect]
     Active Substance: AMITRIPTYLINE
     Indication: PRODUCT USED FOR UNKNOWN INDICATION
     Dosage: TAKES 20MG DAILY BUT SOMETIMES INCREASES TO 40MG DAILY
     Route: 048
  5. GABAPENTIN TEVA [Suspect]
     Active Substance: GABAPENTIN
     Indication: PRODUCT USED FOR UNKNOWN INDICATION
     Dosage: TAKES 2 X 300MG THREE TIMES A DAY??600 MG, TID
     Route: 048

REACTIONS (9)
  - Fatigue [Unknown]
  - Disturbance in attention [Unknown]
  - Hypoaesthesia [Unknown]
  - Depressed mood [Unknown]
  - Impaired work ability [Unknown]
  - Coordination abnormal [Unknown]
  - Impaired driving ability [Unknown]
  - Muscular weakness [Unknown]
  - Loss of control of legs [Unknown]
